FAERS Safety Report 6064967-0 (Version None)
Quarter: 2009Q1

REPORT INFORMATION
  Report Type: 
  Country: None (occurrence: None)
  Receive Date: 20090203
  Receipt Date: 20090203
  Transmission Date: 20090719
  Serious: Yes (Hospitalization)
  Sender: FDA-Public Use
  Company Number: None

PATIENT
  Age: 61 Year
  Sex: Male
  Weight: 102.0593 kg

DRUGS (1)
  1. METOPROLOL SUCCINATE EXTENDED RELEASE [Suspect]
     Indication: BLOOD PRESSURE INADEQUATELY CONTROLLED
     Dosage: 100MG 1 PER DAY PO
     Route: 048
     Dates: start: 20070101, end: 20090129

REACTIONS (2)
  - PRODUCT QUALITY ISSUE [None]
  - SUPRAVENTRICULAR TACHYCARDIA [None]
